FAERS Safety Report 22160736 (Version 1)
Quarter: 2023Q1

REPORT INFORMATION
  Report Type: Spontaneous
  Country: TR (occurrence: TR)
  Receive Date: 20230331
  Receipt Date: 20230331
  Transmission Date: 20230417
  Serious: Yes (Other)
  Sender: FDA-Public Use
  Company Number: TR-GILEAD-2023-0622382

PATIENT
  Age: 42 Year
  Sex: Female

DRUGS (1)
  1. VIREAD [Suspect]
     Active Substance: TENOFOVIR DISOPROXIL FUMARATE
     Indication: Chronic hepatitis B
     Dosage: 245 MG 1X1 FOR 6 MONTHS
     Route: 065

REACTIONS (3)
  - Osteoporosis [Unknown]
  - Arthralgia [Unknown]
  - Myalgia [Unknown]
